FAERS Safety Report 16313999 (Version 1)
Quarter: 2019Q2

REPORT INFORMATION
  Report Type: Spontaneous
  Country: US (occurrence: US)
  Receive Date: 20190515
  Receipt Date: 20190515
  Transmission Date: 20190711
  Serious: No
  Sender: FDA-Public Use
  Company Number: US-PFIZER INC-2019196800

PATIENT
  Sex: Female
  Weight: 54.43 kg

DRUGS (3)
  1. PROPANOLOL HCL [Suspect]
     Active Substance: PROPRANOLOL HYDROCHLORIDE
     Indication: PERSISTENT POSTURAL-PERCEPTUAL DIZZINESS
  2. PROPANOLOL HCL [Suspect]
     Active Substance: PROPRANOLOL HYDROCHLORIDE
     Indication: MIGRAINE
     Dosage: UNK
  3. PROPANOLOL HCL [Suspect]
     Active Substance: PROPRANOLOL HYDROCHLORIDE
     Indication: VESTIBULAR MIGRAINE

REACTIONS (3)
  - Drug ineffective [Recovered/Resolved]
  - Blood pressure decreased [Recovered/Resolved]
  - Vitamin D decreased [Unknown]
